FAERS Safety Report 9053295 (Version 2)
Quarter: 2013Q1

REPORT INFORMATION
  Report Type: Spontaneous
  Country: US (occurrence: US)
  Receive Date: 20130207
  Receipt Date: 20130306
  Transmission Date: 20140127
  Serious: Yes (Hospitalization, Other)
  Sender: FDA-Public Use
  Company Number: US-B.I. PHARMACEUTICALS,INC./RIDGEFIELD-2013-BI-02948BP

PATIENT
  Age: 80 Year
  Sex: Male
  Weight: 73.5 kg

DRUGS (10)
  1. TRADJENTA [Suspect]
     Indication: DIABETES MELLITUS
     Dosage: 2.5 MG
     Route: 048
     Dates: start: 20130123, end: 20130203
  2. TRADJENTA [Suspect]
     Dosage: 5 MG
     Route: 048
     Dates: end: 201302
  3. FLOMAX CAPSULES [Suspect]
     Indication: BENIGN PROSTATIC HYPERPLASIA
     Dosage: 0.4 MG
     Route: 048
  4. ALLEGRA [Concomitant]
     Indication: SEASONAL ALLERGY
     Route: 048
  5. FINASTERIDE [Concomitant]
     Indication: BENIGN PROSTATIC HYPERPLASIA
     Dosage: 5 MG
     Route: 048
  6. ASPIRIN [Concomitant]
     Indication: PROPHYLAXIS
     Dosage: 81 MG
     Route: 048
  7. ASPIRIN [Concomitant]
     Indication: CORONARY ARTERY DISEASE
  8. SIMVASTATIN [Concomitant]
     Indication: BLOOD CHOLESTEROL INCREASED
     Dosage: 20 MG
     Route: 048
  9. SIMVASTATIN [Concomitant]
     Indication: HYPERLIPIDAEMIA
  10. ZYRTEC ALLERGY [Concomitant]
     Indication: HYPERSENSITIVITY
     Dosage: 10 MG

REACTIONS (15)
  - Hypersensitivity [Recovered/Resolved]
  - Angioedema [Recovered/Resolved with Sequelae]
  - Chest pain [Not Recovered/Not Resolved]
  - Pharyngeal oedema [Not Recovered/Not Resolved]
  - Stomatitis [Unknown]
  - Hunger [Not Recovered/Not Resolved]
  - Blood glucose decreased [Not Recovered/Not Resolved]
  - Fatigue [Not Recovered/Not Resolved]
  - Chromaturia [Not Recovered/Not Resolved]
  - Urine abnormality [Not Recovered/Not Resolved]
  - Pain in extremity [Not Recovered/Not Resolved]
  - Erythema [Not Recovered/Not Resolved]
  - Dysphonia [Not Recovered/Not Resolved]
  - Abnormal weight gain [Not Recovered/Not Resolved]
  - Pain in extremity [Not Recovered/Not Resolved]
